FAERS Safety Report 10990664 (Version 3)
Quarter: 2015Q2

REPORT INFORMATION
  Report Type: Report from Study
  Country: US (occurrence: US)
  Receive Date: 20150406
  Receipt Date: 20150522
  Transmission Date: 20150821
  Serious: Yes (Death, Other)
  Sender: FDA-Public Use
  Company Number: US-GILEAD-2015-0146857

PATIENT
  Age: 84 Year
  Sex: Male

DRUGS (12)
  1. PLAVIX [Concomitant]
     Active Substance: CLOPIDOGREL BISULFATE
  2. FLOMAX [Concomitant]
     Active Substance: TAMSULOSIN HYDROCHLORIDE
  3. RANOLAZINE [Suspect]
     Active Substance: RANOLAZINE
     Indication: ANGINA PECTORIS
     Dosage: 1000 MG, UNK
     Route: 048
     Dates: start: 20150401
  4. LASIX [Concomitant]
     Active Substance: FUROSEMIDE
  5. PRILOSEC [Concomitant]
     Active Substance: OMEPRAZOLE MAGNESIUM
  6. ALDACTONE [Concomitant]
     Active Substance: SPIRONOLACTONE
  7. ZETIA [Concomitant]
     Active Substance: EZETIMIBE
  8. COREG [Concomitant]
     Active Substance: CARVEDILOL
  9. CARDURA [Concomitant]
     Active Substance: DOXAZOSIN MESYLATE
  10. ASA [Concomitant]
     Active Substance: ASPIRIN
  11. CRESTOR [Concomitant]
     Active Substance: ROSUVASTATIN CALCIUM
  12. NTG [Concomitant]
     Active Substance: NITROGLYCERIN
     Dosage: UNK, PRN
     Route: 060

REACTIONS (3)
  - Hypoacusis [Unknown]
  - Cardiac failure congestive [Fatal]
  - Dizziness [Unknown]

NARRATIVE: CASE EVENT DATE: 20150427
